FAERS Safety Report 4924872-7 (Version None)
Quarter: 2006Q1

REPORT INFORMATION
  Report Type: 
  Country: None (occurrence: None)
  Receive Date: 20060222
  Receipt Date: 20060213
  Transmission Date: 20060701
  Serious: Yes (Other)
  Sender: FDA-Public Use
  Company Number: CH-2006-000823

PATIENT
  Age: 20 Year
  Sex: Female
  Weight: 59.1 kg

DRUGS (1)
  1. YASMIN [Suspect]
     Dosage: 1 TAB(S, 1X/DAY, ORAL
     Route: 048
     Dates: start: 20030101, end: 20050101

REACTIONS (2)
  - COLITIS ULCERATIVE [None]
  - DIARRHOEA [None]
